FAERS Safety Report 6060804-9 (Version None)
Quarter: 2009Q1

REPORT INFORMATION
  Report Type: 
  Country: None (occurrence: None)
  Receive Date: 20090202
  Receipt Date: 20090126
  Transmission Date: 20090719
  Serious: Yes (Death, Hospitalization)
  Sender: FDA-Public Use
  Company Number: PHHY2009MX02864

PATIENT
  Age: 91 Year
  Sex: Female

DRUGS (6)
  1. DIOVAN [Suspect]
     Indication: HYPERTENSION
     Dosage: 80 MG, QD
     Route: 048
     Dates: start: 20080201, end: 20081201
  2. ALDACTONE [Concomitant]
     Dosage: 1 TABLET PER DAY
     Route: 048
  3. VOLTAREN [Concomitant]
     Dosage: 2 TABLETS PER DAY
     Route: 048
  4. PHARMATON [Concomitant]
  5. DAFLON (DIOSMIN) [Concomitant]
  6. PROPRANOLOL [Concomitant]

REACTIONS (2)
  - DEPRESSED LEVEL OF CONSCIOUSNESS [None]
  - MULTI-ORGAN FAILURE [None]
